FAERS Safety Report 12877912 (Version 1)
Quarter: 2016Q4

REPORT INFORMATION
  Report Type: Spontaneous
  Country: US (occurrence: US)
  Receive Date: 20161024
  Receipt Date: 20161024
  Transmission Date: 20170207
  Serious: Yes (Other)
  Sender: FDA-Public Use
  Company Number: US-TEVA-706454USA

PATIENT
  Sex: Female

DRUGS (1)
  1. COPAXONE [Suspect]
     Active Substance: GLATIRAMER ACETATE
     Indication: MULTIPLE SCLEROSIS
     Route: 058
     Dates: start: 20140828

REACTIONS (5)
  - Musculoskeletal stiffness [Unknown]
  - Fall [Unknown]
  - Multiple sclerosis relapse [Not Recovered/Not Resolved]
  - Fatigue [Unknown]
  - Orthosis user [Unknown]
